FAERS Safety Report 16322188 (Version 1)
Quarter: 2019Q2

REPORT INFORMATION
  Report Type: Spontaneous
  Country: US (occurrence: US)
  Receive Date: 20190516
  Receipt Date: 20190516
  Transmission Date: 20190711
  Serious: Yes (Death)
  Sender: FDA-Public Use
  Company Number: US-PFIZER INC-2019210050

PATIENT

DRUGS (11)
  1. ALBUTEROL SULFATE. [Concomitant]
     Active Substance: ALBUTEROL SULFATE
     Dosage: UNK UNK, 1X/DAY[PM]
  2. HALOPERIDOL LACTATE. [Concomitant]
     Active Substance: HALOPERIDOL LACTATE
     Dosage: UNK UNK, 1X/DAY[PM]
  3. IPRATROPIUM [Concomitant]
     Active Substance: IPRATROPIUM
     Dosage: UNK UNK, 3X/DAY
  4. ACETAMINOPHEN. [Concomitant]
     Active Substance: ACETAMINOPHEN
     Dosage: UNK UNK, 1X/DAY [PM]
  5. BISACODYL. [Concomitant]
     Active Substance: BISACODYL
     Dosage: UNK UNK, 1X/DAY[PM]
  6. TAFAMIDIS [Suspect]
     Active Substance: TAFAMIDIS MEGLUMINE
     Indication: CARDIAC AMYLOIDOSIS
     Dosage: 61 MG, UNK
  7. HYOSCYAMINE SULFATE. [Concomitant]
     Active Substance: HYOSCYAMINE SULFATE
     Dosage: UNK UNK, 1X/DAY[PM]
  8. OXYGEN. [Concomitant]
     Active Substance: OXYGEN
     Dosage: UNK
  9. LORAZEPAM. [Concomitant]
     Active Substance: LORAZEPAM
     Dosage: UNK UNK, 1X/DAY[PM]
  10. MORPHINE SULFATE. [Concomitant]
     Active Substance: MORPHINE SULFATE
     Dosage: UNK UNK, 1X/DAY[PM]
  11. PMS-PROCHLORPERAZINE [PROCHLORPERAZINE MALEATE] [Concomitant]
     Dosage: UNK UNK, 1X/DAY[PM]

REACTIONS (2)
  - Cardiac failure congestive [Fatal]
  - Amyloidosis [Fatal]

NARRATIVE: CASE EVENT DATE: 20190217
